FAERS Safety Report 22312003 (Version 2)
Quarter: 2023Q2

REPORT INFORMATION
  Report Type: Report from Study
  Country: GR (occurrence: GR)
  Receive Date: 20230512
  Receipt Date: 20230602
  Transmission Date: 20230721
  Serious: Yes (Other)
  Sender: FDA-Public Use
  Company Number: GR-CELLTRION INC.-2023GR009689

PATIENT

DRUGS (5)
  1. RITUXIMAB [Suspect]
     Active Substance: RITUXIMAB
     Indication: Chronic lymphocytic leukaemia
     Dosage: 800 MG
     Route: 042
     Dates: start: 20211026, end: 20221115
  2. VENETOCLAX [Suspect]
     Active Substance: VENETOCLAX
     Indication: Chronic lymphocytic leukaemia
     Dosage: 400 MG, EVERY 1 DAY (DURATION TEXT: ONE AND A HALF YEARS)
     Route: 048
     Dates: start: 20211019, end: 20230417
  3. VENETOCLAX [Suspect]
     Active Substance: VENETOCLAX
     Dosage: UNK, QD (400 OF UNSPECIFIED UNIT)
     Route: 048
     Dates: start: 20230509
  4. ZOVIRAX [Concomitant]
     Active Substance: ACYCLOVIR
     Indication: Antiviral prophylaxis
     Dosage: 400 MG, EVERY 0.5 DAY
     Route: 048
     Dates: start: 20211026
  5. BARACLUDE [Concomitant]
     Active Substance: ENTECAVIR
     Indication: Antiviral prophylaxis
     Dosage: 0.5 MG, EVERY 1 DAY (UNIT DOSE: 0.5 MG)
     Route: 048
     Dates: start: 20211001

REACTIONS (2)
  - COVID-19 [Recovered/Resolved]
  - Overdose [Unknown]

NARRATIVE: CASE EVENT DATE: 20230417
